FAERS Safety Report 22104263 (Version 1)
Quarter: 2023Q1

REPORT INFORMATION
  Report Type: Spontaneous
  Country: US (occurrence: US)
  Receive Date: 20230316
  Receipt Date: 20230316
  Transmission Date: 20230418
  Serious: Yes (Disabling, Other)
  Sender: FDA-Public Use
  Company Number: US-TEVA-2023-US-2866731

PATIENT
  Age: 66 Year
  Sex: Female
  Weight: 140.61 kg

DRUGS (14)
  1. DOCETAXEL [Suspect]
     Active Substance: DOCETAXEL
     Indication: Breast cancer female
     Dosage: NUMBER OF CYCLES 6: 20-JAN-2015, 10-FEB-2015, 03-MAR-2015,24-MAR-2015,14-APR-2015, 05-MAY-2015.FREQU
     Route: 042
     Dates: start: 20150120, end: 20150505
  2. DOCETAXEL [Suspect]
     Active Substance: DOCETAXEL
     Route: 042
  3. CARBOPLATIN [Suspect]
     Active Substance: CARBOPLATIN
     Indication: Breast cancer female
     Dosage: NUMBER OF CYCLES 6: 20-JAN-2015, 10-FEB-2015,03-MAR-2015,24-MAR-2015,14-APR-2015, 05-MAY-2015.?FREQU
     Route: 042
     Dates: start: 20150120, end: 20150505
  4. DOCETAXEL [Suspect]
     Active Substance: DOCETAXEL
     Indication: Breast cancer female
     Dosage: NUMBER OF CYCLES 6: 20-JAN-2015, 10-FEB-2015,03-MAR-2015,24-MAR-2015,14-APR-2015, 05-MAY-2015.FREQUE
     Route: 042
     Dates: start: 20150120, end: 20150505
  5. DOCETAXEL [Suspect]
     Active Substance: DOCETAXEL
     Route: 042
  6. DOCETAXEL [Suspect]
     Active Substance: DOCETAXEL
     Route: 042
  7. HERCEPTIN [Suspect]
     Active Substance: TRASTUZUMAB
     Indication: Product used for unknown indication
     Dosage: NUMBER OF CYCLES 6: 20-JAN-2015, 560 MG, 10-FEB-2015, 280 MG ,03-MAR-2015, 280 MG ,24-MAR-2015, 280
     Route: 042
     Dates: start: 20150120, end: 20150505
  8. HERCEPTIN [Suspect]
     Active Substance: TRASTUZUMAB
     Dosage: 1 YEAR MAINTENANCE DOSE, LAST DOSE OF HERCEPTIN WAS ON 22-OCT-2015, EVERY 3 WEEKS
     Route: 042
     Dates: start: 20150526
  9. VITAMIN E [Concomitant]
     Active Substance: .ALPHA.-TOCOPHEROL
     Indication: Product used for unknown indication
     Dosage: 400 UNIT
     Route: 065
     Dates: start: 1981
  10. BENAZEPRIL [Concomitant]
     Active Substance: BENAZEPRIL HYDROCHLORIDE
     Indication: Product used for unknown indication
     Route: 065
  11. LANTUS [Concomitant]
     Active Substance: INSULIN GLARGINE
     Indication: Product used for unknown indication
     Dosage: 50 UNITS
     Route: 065
  12. VICTOZA [Concomitant]
     Active Substance: LIRAGLUTIDE
     Indication: Product used for unknown indication
     Route: 065
  13. ALENDRONATE SODIUM [Concomitant]
     Active Substance: ALENDRONATE SODIUM
     Indication: Product used for unknown indication
     Route: 065
  14. ANASTROZOLE [Concomitant]
     Active Substance: ANASTROZOLE
     Indication: Product used for unknown indication
     Dates: start: 201501

REACTIONS (17)
  - Alopecia totalis [Unknown]
  - Madarosis [Not Recovered/Not Resolved]
  - Breast haemorrhage [Unknown]
  - Pancytopenia [Recovering/Resolving]
  - Neuropathy peripheral [Not Recovered/Not Resolved]
  - Peripheral swelling [Recovered/Resolved]
  - Fatigue [Recovering/Resolving]
  - Rash vesicular [Recovering/Resolving]
  - Rash [Recovering/Resolving]
  - Erythema [Unknown]
  - Skin exfoliation [Unknown]
  - Back pain [Unknown]
  - Dysuria [Unknown]
  - Osteopenia [Unknown]
  - Superficial vein thrombosis [Unknown]
  - Hair colour changes [Unknown]
  - Hair texture abnormal [Unknown]

NARRATIVE: CASE EVENT DATE: 20150101
